FAERS Safety Report 5029208-1 (Version None)
Quarter: 2006Q2

REPORT INFORMATION
  Report Type: 
  Country: None (occurrence: None)
  Receive Date: 20060616
  Receipt Date: 20060616
  Transmission Date: 20061013
  Serious: Yes (Life-Threatening, Other)
  Sender: FDA-Public Use
  Company Number: None

PATIENT
  Age: 35 Year
  Sex: Female
  Weight: 81.6475 kg

DRUGS (2)
  1. ZITHROMAX [Suspect]
     Indication: LOWER RESPIRATORY TRACT INFECTION
     Dosage: 5 DAYS
  2. ZITHROMAX [Suspect]
     Indication: SINUSITIS
     Dosage: 5 DAYS

REACTIONS (1)
  - REACTION TO FOOD ADDITIVE [None]
